FAERS Safety Report 26097244 (Version 1)
Quarter: 2025Q4

REPORT INFORMATION
  Report Type: Spontaneous
  Country: EU (occurrence: EU)
  Receive Date: 20251127
  Receipt Date: 20251127
  Transmission Date: 20260117
  Serious: Yes (Other)
  Sender: TEVA
  Company Number: None

PATIENT
  Age: 72 Year
  Sex: Male
  Weight: 97 kg

DRUGS (6)
  1. ALENDRONIC ACID [Suspect]
     Active Substance: ALENDRONIC ACID
     Indication: Product used for unknown indication
     Dosage: OSTENIL 70
     Route: 048
  2. ATORVASTATIN [Concomitant]
     Active Substance: ATORVASTATIN
     Indication: Blood cholesterol
     Dosage: DOSE: 1 UNIT UNKNOWN; DURATION: FOR SEVERAL YEARS
     Route: 048
  3. PIRACETAM [Concomitant]
     Active Substance: PIRACETAM
     Indication: Product used for unknown indication
     Dosage: DOSE: 1 UNIT UNKNOWN; DURATION: FOR SEVERAL YEARS
     Route: 048
  4. VALSARTAN [Concomitant]
     Active Substance: VALSARTAN
     Indication: Product used for unknown indication
     Dosage: DOSE:1 UNIT UNKNOWN; DURATION: FOR SEVERAL YEARS
     Route: 048
  5. BISOPROLOL [Concomitant]
     Active Substance: BISOPROLOL
     Indication: Heart rate
     Dosage: DOSE: 1 UNIT UNKNOWN; DURATION: FOR SEVERAL YEARS
     Route: 048
  6. LEVOTHYROXINE SODIUM [Concomitant]
     Active Substance: LEVOTHYROXINE SODIUM
     Indication: Hypothyroidism
     Dosage: DOSE: 0.5 UNIT UNKNOWN
     Route: 048

REACTIONS (3)
  - Bone disorder [Not Recovered/Not Resolved]
  - Lividity [Recovered/Resolved]
  - Erythema [Not Recovered/Not Resolved]
